FAERS Safety Report 9220207 (Version 2)
Quarter: 2013Q2

REPORT INFORMATION
  Report Type: Spontaneous
  Country: US (occurrence: US)
  Receive Date: 20130409
  Receipt Date: 20130613
  Transmission Date: 20140414
  Serious: No
  Sender: FDA-Public Use
  Company Number: US-009507513-1304USA003289

PATIENT
  Sex: Female
  Weight: 52.61 kg

DRUGS (2)
  1. JANUVIA [Suspect]
     Dosage: UNK
     Route: 048
  2. GLIPIZIDE [Concomitant]

REACTIONS (3)
  - Renal disorder [Unknown]
  - Blood cholesterol increased [Unknown]
  - Hypertension [Unknown]
